FAERS Safety Report 8788827 (Version 3)
Quarter: 2012Q4

REPORT INFORMATION
  Report Type: Report from Study
  Country: US (occurrence: US)
  Receive Date: 20120915
  Receipt Date: 20121010
  Transmission Date: 20130627
  Serious: Yes (Hospitalization)
  Sender: FDA-Public Use
  Company Number: US-ABBOTT-12P-163-0977346-00

PATIENT
  Sex: Male
  Weight: 64.47 kg

DRUGS (8)
  1. CREON [Suspect]
     Indication: GASTRIC DISORDER
     Dosage: 3-4 pills with meals
     Dates: start: 2011
  2. CREON [Suspect]
     Indication: PANCREATITIS CHRONIC
  3. CREON [Suspect]
     Indication: PANCREATIC INSUFFICIENCY
  4. PANTOPRAZOLE [Concomitant]
     Indication: GASTRIC DISORDER
  5. PLAVIX [Concomitant]
     Indication: CORONARY ARTERIAL STENT INSERTION
     Dates: start: 2010
  6. RAMIPRIL [Concomitant]
     Indication: HYPERTENSION
  7. METOPROLOL [Concomitant]
     Indication: HYPERTENSION
  8. SIMVASTATIN [Concomitant]
     Indication: HYPERLIPIDAEMIA

REACTIONS (5)
  - Blood disorder [Unknown]
  - Diabetes mellitus [Not Recovered/Not Resolved]
  - Weight decreased [Not Recovered/Not Resolved]
  - Abdominal pain [Recovering/Resolving]
  - Feeling of body temperature change [Recovered/Resolved]
